FAERS Safety Report 10883101 (Version 1)
Quarter: 2015Q1

REPORT INFORMATION
  Report Type: Spontaneous
  Country: US (occurrence: None)
  Receive Date: 20150226
  Receipt Date: 20150226
  Transmission Date: 20150721
  Serious: Yes (Other)
  Sender: FDA-Public Use
  Company Number: None

PATIENT
  Age: 51 Year
  Sex: Female
  Weight: 81.65 kg

DRUGS (3)
  1. HERBAL TEAS [Concomitant]
     Active Substance: HERBALS
  2. AMOX/K CLAV (SUBSTITUTED FOR AUGM [Suspect]
     Active Substance: AMOXICILLIN\CLAVULANATE POTASSIUM
     Indication: COUGH
     Dosage: ONE TABLET, TWICE DAILY, TAKEN BY MOUTH
     Route: 048
     Dates: start: 20150224, end: 20150224
  3. MULTI VITAMIN [Concomitant]
     Active Substance: VITAMINS

REACTIONS (1)
  - Hypersensitivity [None]

NARRATIVE: CASE EVENT DATE: 20150224
